FAERS Safety Report 5910252-4 (Version None)
Quarter: 2008Q4

REPORT INFORMATION
  Report Type: 
  Country: None (occurrence: None)
  Receive Date: 20081007
  Receipt Date: 20071105
  Transmission Date: 20090506
  Serious: Yes (Other)
  Sender: FDA-Public Use
  Company Number: US-ASTRAZENECA-2007UW25565

PATIENT
  Age: 63 Year
  Sex: Female
  Weight: 68 kg

DRUGS (5)
  1. ARIMIDEX [Suspect]
     Indication: BREAST CANCER
     Route: 048
     Dates: start: 20021101, end: 20071102
  2. PROPYL-THIOURACIL [Concomitant]
     Indication: THYROID DISORDER
     Route: 048
  3. CALCIUM [Concomitant]
     Route: 048
  4. MULTI-VITAMINS [Concomitant]
     Route: 048
  5. XANAX [Concomitant]
     Route: 048

REACTIONS (3)
  - ARTHRALGIA [None]
  - CATARACT [None]
  - FATIGUE [None]
